FAERS Safety Report 8986114 (Version 1)
Quarter: 2012Q4

REPORT INFORMATION
  Report Type: Spontaneous
  Country: US (occurrence: None)
  Receive Date: 20121005
  Receipt Date: 20121005
  Transmission Date: 20130627
  Serious: Yes (Hospitalization)
  Sender: FDA-Public Use
  Company Number: 30730

PATIENT
  Age: 71 Year
  Sex: Female
  Weight: 130.64 kg

DRUGS (12)
  1. GLASSIA [Suspect]
     Indication: ALPHA-1 ANTI-TRYPSIN DEFICIENCY
     Route: 042
     Dates: start: 20111122
  2. ALBUTEROL [Concomitant]
  3. ATROVENT [Concomitant]
  4. DULERA [Concomitant]
  5. AEROBID [Concomitant]
  6. LASIX [Concomitant]
  7. LEVOTHYROXINE SODIUM [Concomitant]
  8. LISINOPRIL [Concomitant]
  9. NITROGLYCERIN [Concomitant]
  10. POTASSIUM CHLORIDE [Concomitant]
  11. TORSEMIDE [Concomitant]
  12. CIPRO [Concomitant]

REACTIONS (15)
  - Bronchitis chronic [None]
  - Condition aggravated [None]
  - Pneumonia [None]
  - Angina unstable [None]
  - Headache [None]
  - Sneezing [None]
  - Ear pain [None]
  - Dizziness [None]
  - Dysphagia [None]
  - Dehydration [None]
  - Lung infection [None]
  - Tracheal disorder [None]
  - Nasal congestion [None]
  - Upper-airway cough syndrome [None]
  - Wheezing [None]
